FAERS Safety Report 15190449 (Version 1)
Quarter: 2018Q3

REPORT INFORMATION
  Report Type: Spontaneous
  Country: US (occurrence: US)
  Receive Date: 20180724
  Receipt Date: 20180724
  Transmission Date: 20181010
  Serious: Yes (Hospitalization, Other)
  Sender: FDA-Public Use
  Company Number: US-SA-2018SA068671

PATIENT
  Sex: Female

DRUGS (1)
  1. AUBAGIO [Suspect]
     Active Substance: TERIFLUNOMIDE
     Indication: MULTIPLE SCLEROSIS
     Dosage: 14 MG,QD
     Route: 048

REACTIONS (7)
  - Hospitalisation [Unknown]
  - Walking disability [Unknown]
  - Multiple sclerosis relapse [Unknown]
  - Hemiplegia [Unknown]
  - Hemiparesis [Unknown]
  - Urinary tract infection [Unknown]
  - Impaired work ability [Unknown]
